FAERS Safety Report 4407727-6 (Version None)
Quarter: 2004Q3

REPORT INFORMATION
  Report Type: 
  Country: None (occurrence: None)
  Receive Date: 20040726
  Receipt Date: 20040721
  Transmission Date: 20050211
  Serious: Yes (Hospitalization)
  Sender: FDA-Public Use
  Company Number: US-MERCK-0407USA01777

PATIENT
  Age: 71 Year
  Sex: Male

DRUGS (4)
  1. PACERONE [Concomitant]
     Route: 065
  2. COREG [Concomitant]
     Route: 065
  3. AVAPRO [Concomitant]
     Route: 065
  4. ZOCOR [Suspect]
     Indication: BLOOD CHOLESTEROL INCREASED
     Route: 048
     Dates: start: 20030101

REACTIONS (4)
  - FATIGUE [None]
  - HEART RATE IRREGULAR [None]
  - HYPERTENSION [None]
  - MUSCULAR WEAKNESS [None]
